FAERS Safety Report 6696275-9 (Version None)
Quarter: 2010Q2

REPORT INFORMATION
  Report Type: 
  Country: None (occurrence: None)
  Receive Date: 20100421
  Receipt Date: 20100409
  Transmission Date: 20101027
  Serious: Yes (Hospitalization)
  Sender: FDA-Public Use
  Company Number: 1000013164

PATIENT
  Age: 69 Year
  Sex: Female

DRUGS (1)
  1. MILNACIPRAN (MILNACIPRAN HYDROCHLORIDE) (TABLETS) [Suspect]
     Dosage: ORAL
     Route: 048
     Dates: start: 20080801, end: 20080901

REACTIONS (1)
  - TOXIC EPIDERMAL NECROLYSIS [None]
